FAERS Safety Report 17427951 (Version 1)
Quarter: 2020Q1

REPORT INFORMATION
  Report Type: Spontaneous
  Country: DE (occurrence: DE)
  Receive Date: 20200218
  Receipt Date: 20200218
  Transmission Date: 20200409
  Serious: Yes (Other)
  Sender: FDA-Public Use
  Company Number: NVSC2020DE041013

PATIENT

DRUGS (4)
  1. LEVETIRACETAM. [Suspect]
     Active Substance: LEVETIRACETAM
     Indication: FOETAL EXPOSURE DURING PREGNANCY
     Dosage: 500 MG, Q12H (MOTHER DOSE:2X/DAY (BID))
     Route: 064
  2. CLOBAZAM. [Suspect]
     Active Substance: CLOBAZAM
     Indication: FOETAL EXPOSURE DURING PREGNANCY
     Dosage: 10 MG, QD (MOTHER DOSE)
     Route: 064
     Dates: start: 20050525
  3. VALPROATE SODIUM. [Suspect]
     Active Substance: VALPROATE SODIUM
     Indication: FOETAL EXPOSURE DURING PREGNANCY
     Dosage: 1500 MG, QD (MOTHER DOSE: MAXIMUM SINGLE DOSE; 1000 MG)
     Route: 064
     Dates: start: 2005
  4. LAMOTRIGINE. [Concomitant]
     Active Substance: LAMOTRIGINE
     Indication: FOETAL EXPOSURE DURING PREGNANCY
     Dosage: UNK (MOTHER DOSE: MAXIMAUM SINGLE DOSE: 200 MG.TOTAL DAILY DOSE : 350 MG)
     Route: 064
     Dates: start: 20031231, end: 20050622

REACTIONS (2)
  - Premature delivery [Unknown]
  - Foetal exposure during pregnancy [Unknown]

NARRATIVE: CASE EVENT DATE: 20060131
